FAERS Safety Report 7221178-0 (Version None)
Quarter: 2011Q1

REPORT INFORMATION
  Report Type: 
  Country: None (occurrence: None)
  Receive Date: 20110112
  Receipt Date: 20110103
  Transmission Date: 20110831
  Serious: Yes (Death)
  Sender: FDA-Public Use
  Company Number: BR-TYCO HEALTHCARE/MALLINCKRODT-T201100001

PATIENT
  Age: 73 Year
  Sex: Female

DRUGS (8)
  1. OPTIRAY 350 [Suspect]
     Indication: COMPUTERISED TOMOGRAM
     Dosage: 100 ML, SINGLE
     Route: 042
     Dates: start: 20101210, end: 20101210
  2. CIMETIDINE [Concomitant]
     Indication: PREMEDICATION
     Dosage: AT 1900
     Dates: start: 20101209, end: 20101209
  3. CIMETIDINE [Concomitant]
     Dosage: AT 0900
     Dates: start: 20101210, end: 20101210
  4. ALLEGRA [Concomitant]
     Indication: PREMEDICATION
     Dosage: 120 MG AT 1900
     Dates: start: 20101209, end: 20101209
  5. HYDROCHLOROTHIAZIDE [Concomitant]
     Indication: HYPERTENSION
     Dosage: UNK
  6. ALLEGRA [Concomitant]
     Dosage: 120 MG AT 0900
     Dates: start: 20101210, end: 20101210
  7. BRONCHODILATOR [Concomitant]
     Indication: ASTHMA
     Dosage: UNK
  8. HYDROCORTISONE [Concomitant]
     Indication: PREMEDICATION
     Dosage: 500 MG, SINGLE
     Route: 042
     Dates: start: 20101210, end: 20101210

REACTIONS (7)
  - NAUSEA [None]
  - VOMITING [None]
  - OXYGEN SATURATION DECREASED [None]
  - CYANOSIS [None]
  - COUGH [None]
  - DYSPNOEA [None]
  - MALAISE [None]
